FAERS Safety Report 23889629 (Version 2)
Quarter: 2024Q2

REPORT INFORMATION
  Report Type: Report from Study
  Country: NZ (occurrence: NZ)
  Receive Date: 20240523
  Receipt Date: 20240611
  Transmission Date: 20240715
  Serious: Yes (Hospitalization)
  Sender: FDA-Public Use
  Company Number: NZ-PFIZER INC-PV202400064739

PATIENT
  Age: 77 Year
  Sex: Female
  Weight: 52 kg

DRUGS (18)
  1. VINCRISTINE SULFATE [Suspect]
     Active Substance: VINCRISTINE SULFATE
     Indication: Diffuse large B-cell lymphoma
     Dosage: 2 MG
     Route: 042
     Dates: start: 20220527
  2. DOXORUBICIN [Suspect]
     Active Substance: DOXORUBICIN
     Indication: Diffuse large B-cell lymphoma
     Dosage: 85 MG
     Route: 042
     Dates: start: 20220527
  3. DOXORUBICIN [Suspect]
     Active Substance: DOXORUBICIN
     Dosage: 75 MG
     Route: 042
     Dates: start: 20220916
  4. INVESTIGATIONAL PRODUCT [Suspect]
     Active Substance: INVESTIGATIONAL PRODUCT
     Indication: Diffuse large B-cell lymphoma
     Dosage: UNK, WEEKLY, TAFASITAMAB/PLACEBO
     Route: 042
     Dates: start: 20220526
  5. INVESTIGATIONAL PRODUCT [Suspect]
     Active Substance: INVESTIGATIONAL PRODUCT
     Dosage: UNK, 1X/DAY (QD), LENALIDOMIDE/PLACEBO
     Dates: start: 20220526
  6. RITUXIMAB [Suspect]
     Active Substance: RITUXIMAB
     Indication: Diffuse large B-cell lymphoma
     Dosage: 600 MG
     Route: 042
     Dates: start: 20220527
  7. CYCLOPHOSPHAMIDE [Suspect]
     Active Substance: CYCLOPHOSPHAMIDE
     Indication: Diffuse large B-cell lymphoma
     Dosage: 1250 MG
     Route: 042
     Dates: start: 20220522
  8. CYCLOPHOSPHAMIDE [Suspect]
     Active Substance: CYCLOPHOSPHAMIDE
     Dosage: 1150 MG
     Route: 042
     Dates: start: 20220916
  9. PREDNISONE [Suspect]
     Active Substance: PREDNISONE
     Indication: Diffuse large B-cell lymphoma
     Dosage: 100 MG, REGIMEN#1
     Route: 048
     Dates: start: 20220526, end: 20220530
  10. PREDNISONE [Suspect]
     Active Substance: PREDNISONE
     Dosage: 100 MG, REGIMEN#2
     Route: 048
     Dates: start: 20220916, end: 20220920
  11. ASPIRIN [Concomitant]
     Active Substance: ASPIRIN
     Dosage: UNK
     Dates: start: 20220924
  12. MORPHINE SULFATE [Concomitant]
     Active Substance: MORPHINE SULFATE
     Dosage: UNK
     Dates: start: 20220924
  13. OMEPRAZOLE [Concomitant]
     Active Substance: DONEPEZIL HYDROCHLORIDE\OMEPRAZOLE\OMEPRAZOLE MAGNESIUM
     Indication: Gastritis
     Dosage: UNK
     Dates: start: 20220924
  14. VALACYCLOVIR HYDROCHLORIDE [Concomitant]
     Active Substance: VALACYCLOVIR HYDROCHLORIDE
     Dosage: UNK
     Dates: start: 20220924
  15. ATORVASTATIN [Concomitant]
     Active Substance: ATORVASTATIN
     Dosage: UNK
     Dates: start: 20220924
  16. ACETAMINOPHEN [Concomitant]
     Active Substance: ACETAMINOPHEN
     Dosage: UNK
     Dates: start: 20220924
  17. ONDANSETRON [Concomitant]
     Active Substance: ONDANSETRON
     Dosage: UNK
     Dates: start: 20220924
  18. GABAPENTIN [Concomitant]
     Active Substance: GABAPENTIN
     Dosage: UNK
     Dates: start: 20220924

REACTIONS (1)
  - Device related sepsis [Recovered/Resolved]

NARRATIVE: CASE EVENT DATE: 20220924
